FAERS Safety Report 6914820-2 (Version None)
Quarter: 2010Q3

REPORT INFORMATION
  Report Type: 
  Country: None (occurrence: None)
  Receive Date: 20100809
  Receipt Date: 20100730
  Transmission Date: 20110219
  Serious: Yes (Hospitalization)
  Sender: FDA-Public Use
  Company Number: IT-ABBOTT-10P-083-0660956-00

PATIENT
  Age: 33 Year
  Sex: Female

DRUGS (2)
  1. DEPAKENE [Suspect]
     Indication: ANXIETY
     Dosage: ONCE
     Route: 048
     Dates: start: 20100602, end: 20100602
  2. DULOXETINE HYDROCHLORIDE [Suspect]
     Indication: ANXIETY
     Dosage: ONCE
     Route: 048
     Dates: start: 20100602, end: 20100602

REACTIONS (2)
  - OVERDOSE [None]
  - SOPOR [None]
